FAERS Safety Report 6380769-X (Version None)
Quarter: 2009Q3

REPORT INFORMATION
  Report Type: 
  Country: None (occurrence: None)
  Receive Date: 20090925
  Receipt Date: 20090925
  Transmission Date: 20100115
  Serious: Yes (Other)
  Sender: FDA-Public Use
  Company Number: None

PATIENT
  Sex: Female
  Weight: 45.3597 kg

DRUGS (1)
  1. LATISSE [Suspect]
     Indication: HYPOTRICHOSIS
     Dosage: 1 DROP TO UPPER LID MARGIN EVERY NIGHT AT BED TOP
     Route: 061
     Dates: start: 20090514, end: 20090714

REACTIONS (1)
  - IRIS HYPERPIGMENTATION [None]
